FAERS Safety Report 18249011 (Version 2)
Quarter: 2020Q3

REPORT INFORMATION
  Report Type: Spontaneous
  Country: JP (occurrence: JP)
  Receive Date: 20200909
  Receipt Date: 20200914
  Transmission Date: 20201103
  Serious: Yes (Other)
  Sender: FDA-Public Use
  Company Number: JP-CELGENEUS-JPN-20200901115

PATIENT
  Age: 7 Decade

DRUGS (1)
  1. POMALYST [Suspect]
     Active Substance: POMALIDOMIDE
     Indication: PLASMA CELL MYELOMA
     Dosage: UNKNOWN
     Route: 048

REACTIONS (5)
  - White blood cell count decreased [Unknown]
  - Myelosuppression [Unknown]
  - Dyspnoea [Unknown]
  - Vital capacity decreased [Unknown]
  - Nasopharyngitis [Unknown]
